FAERS Safety Report 15351599 (Version 2)
Quarter: 2019Q2

REPORT INFORMATION
  Report Type: Spontaneous
  Country: US (occurrence: US)
  Receive Date: 20180905
  Receipt Date: 20190520
  Transmission Date: 20190711
  Serious: No
  Sender: FDA-Public Use
  Company Number: US-BIOGEN-2018BI00627190

PATIENT
  Sex: Female

DRUGS (2)
  1. PLEGRIDY [Suspect]
     Active Substance: PEGINTERFERON BETA-1A
     Indication: MULTIPLE SCLEROSIS
     Route: 050
  2. PLEGRIDY [Suspect]
     Active Substance: PEGINTERFERON BETA-1A
     Dosage: MAINTENANCE DOSE
     Route: 050

REACTIONS (1)
  - Hypersensitivity [Unknown]
